FAERS Safety Report 12922694 (Version 1)
Quarter: 2016Q4

REPORT INFORMATION
  Report Type: Spontaneous
  Country: US (occurrence: US)
  Receive Date: 20161108
  Receipt Date: 20161108
  Transmission Date: 20170207
  Serious: Yes (Other)
  Sender: FDA-Public Use
  Company Number: None

PATIENT
  Age: 80 Year
  Sex: Male

DRUGS (3)
  1. LIPITOR [Concomitant]
     Active Substance: ATORVASTATIN CALCIUM
  2. JAKAFI [Concomitant]
     Active Substance: RUXOLITINIB
  3. JADENU [Suspect]
     Active Substance: DEFERASIROX
     Indication: CHRONIC MYELOID LEUKAEMIA
     Route: 048
     Dates: start: 20160122

REACTIONS (2)
  - Leg amputation [None]
  - Cerebrovascular accident [None]

NARRATIVE: CASE EVENT DATE: 20161107
